FAERS Safety Report 9511175 (Version 1)
Quarter: 2013Q3

REPORT INFORMATION
  Report Type: Report from Study
  Country: US (occurrence: US)
  Receive Date: 20130910
  Receipt Date: 20130910
  Transmission Date: 20140515
  Serious: Yes (Hospitalization, Disabling)
  Sender: FDA-Public Use
  Company Number: US-TEVA-431215USA

PATIENT
  Age: 72 Year
  Sex: Male
  Weight: 93 kg

DRUGS (12)
  1. BENDAMUSTINE [Suspect]
     Indication: CHRONIC LYMPHOCYTIC LEUKAEMIA
     Route: 042
     Dates: start: 20130701
  2. RITUXIMAB [Suspect]
     Indication: CHRONIC LYMPHOCYTIC LEUKAEMIA
     Route: 042
     Dates: start: 20130701
  3. BLINDED STUDY DRUG (GS-1101) [Suspect]
     Indication: CHRONIC LYMPHOCYTIC LEUKAEMIA
     Dosage: 300 MILLIGRAM DAILY;
     Route: 048
     Dates: start: 20130701
  4. METOPROLOL [Concomitant]
  5. ALLOPURINOL [Concomitant]
  6. FLECAINIDE [Concomitant]
  7. TAMOXIFEN [Concomitant]
  8. PRILOSEC [Concomitant]
  9. LEXAPRO [Concomitant]
  10. LIPITOR [Concomitant]
  11. BENAZEPRIL [Concomitant]
  12. WARFARIN [Concomitant]

REACTIONS (1)
  - Pneumonitis [Recovered/Resolved]
